FAERS Safety Report 6379720-8 (Version None)
Quarter: 2009Q3

REPORT INFORMATION
  Report Type: 
  Country: None (occurrence: None)
  Receive Date: 20090924
  Receipt Date: 20090924
  Transmission Date: 20100115
  Serious: Yes (Other)
  Sender: FDA-Public Use
  Company Number: None

PATIENT
  Age: 68 Year
  Sex: Female
  Weight: 64.4108 kg

DRUGS (2)
  1. FOSAMAX [Suspect]
     Indication: MENOPAUSAL SYMPTOMS
     Dosage: ONCE WEEKLY PO
     Route: 048
     Dates: start: 19990201, end: 20090817
  2. FOSAMAX [Suspect]
     Indication: OSTEOPOROSIS
     Dosage: ONCE WEEKLY PO
     Route: 048
     Dates: start: 19990201, end: 20090817

REACTIONS (4)
  - BONE FRAGMENTATION [None]
  - DENTAL PROSTHESIS USER [None]
  - JAW DISORDER [None]
  - ORAL INFECTION [None]
